FAERS Safety Report 6003923-5 (Version None)
Quarter: 2008Q4

REPORT INFORMATION
  Report Type: 
  Country: None (occurrence: None)
  Receive Date: 20081216
  Receipt Date: 20081204
  Transmission Date: 20090506
  Serious: Yes (Other)
  Sender: FDA-Public Use
  Company Number: CY-PFIZER INC-2008152421

PATIENT

DRUGS (2)
  1. SUTENT [Suspect]
     Dosage: 50 MG, UNK
  2. WARFARIN SODIUM [Suspect]
     Indication: VENA CAVA THROMBOSIS

REACTIONS (3)
  - HAEMORRHOIDS [None]
  - INTERNATIONAL NORMALISED RATIO INCREASED [None]
  - RECTAL HAEMORRHAGE [None]
